FAERS Safety Report 20900657 (Version 1)
Quarter: 2022Q2

REPORT INFORMATION
  Report Type: Spontaneous
  Country: FR (occurrence: None)
  Receive Date: 20220601
  Receipt Date: 20220601
  Transmission Date: 20220721
  Serious: Yes (Other)
  Sender: FDA-Public Use
  Company Number: 2022A198113

PATIENT
  Sex: Female

DRUGS (1)
  1. PULMICORT TURBUHALER [Suspect]
     Active Substance: BUDESONIDE
     Indication: Chronic obstructive pulmonary disease
     Dosage: 400.0UG/INHAL UNKNOWN
     Route: 055

REACTIONS (4)
  - Urinary tract obstruction [Unknown]
  - Abdominal pain [Not Recovered/Not Resolved]
  - Intentional product misuse [Unknown]
  - Off label use [Not Recovered/Not Resolved]
